FAERS Safety Report 9351061 (Version 1)
Quarter: 2013Q2

REPORT INFORMATION
  Report Type: Spontaneous
  Country: CN (occurrence: CN)
  Receive Date: 20130617
  Receipt Date: 20130617
  Transmission Date: 20140414
  Serious: Yes (Hospitalization)
  Sender: FDA-Public Use
  Company Number: CN-JNJFOC-20130604403

PATIENT
  Age: 7 Year
  Sex: Female

DRUGS (1)
  1. VERMOX [Suspect]
     Indication: INFECTION PARASITIC
     Route: 048
     Dates: start: 20130604, end: 20130605

REACTIONS (1)
  - Henoch-Schonlein purpura [Not Recovered/Not Resolved]
